FAERS Safety Report 24321791 (Version 3)
Quarter: 2024Q4

REPORT INFORMATION
  Report Type: Spontaneous
  Country: US (occurrence: US)
  Receive Date: 20240916
  Receipt Date: 20241219
  Transmission Date: 20250114
  Serious: Yes (Other)
  Sender: TEVA
  Company Number: US-TEVA-VS-3243243

PATIENT
  Age: 76 Year
  Sex: Male

DRUGS (2)
  1. VALSARTAN [Suspect]
     Active Substance: VALSARTAN
     Indication: Product used for unknown indication
     Route: 065
  2. VALSARTAN [Suspect]
     Active Substance: VALSARTAN
     Indication: Product used for unknown indication
     Route: 065

REACTIONS (1)
  - Renal cancer [Unknown]
